FAERS Safety Report 9629583 (Version 1)
Quarter: 2013Q4

REPORT INFORMATION
  Report Type: Spontaneous
  Country: US (occurrence: US)
  Receive Date: 20131017
  Receipt Date: 20131017
  Transmission Date: 20140711
  Serious: Yes (Hospitalization)
  Sender: FDA-Public Use
  Company Number: US-BAYER-2013-124095

PATIENT
  Age: 60 Year
  Sex: Male

DRUGS (2)
  1. CIPRO [Suspect]
     Indication: PYREXIA
     Dosage: 500 MG, BID
  2. SUTENT [Concomitant]
     Indication: RENAL CELL CARCINOMA
     Dosage: 50 MG, UNK

REACTIONS (2)
  - General physical health deterioration [Recovered/Resolved]
  - Fall [Recovered/Resolved]
